FAERS Safety Report 4353476-2 (Version None)
Quarter: 2004Q2

REPORT INFORMATION
  Report Type: 
  Country: None (occurrence: None)
  Receive Date: 20040505
  Receipt Date: 20040505
  Transmission Date: 20050107
  Serious: Yes (Hospitalization)
  Sender: FDA-Public Use
  Company Number: None

PATIENT
  Age: 75 Year
  Sex: Male
  Weight: 127 kg

DRUGS (16)
  1. ASPIRIN [Suspect]
     Indication: ATRIAL FIBRILLATION
     Dosage: 325 MG QD ORAL
     Route: 048
     Dates: end: 20030530
  2. IBUPROFEN [Suspect]
  3. WARFARIN SODIUM [Suspect]
  4. DIGOXIN [Concomitant]
  5. METOPROLOL SUCCINATE [Concomitant]
  6. DEXTROMETHORPHAN/GUAIFENESIN LIQUID [Concomitant]
  7. LOSARTAN POTASSIUM [Concomitant]
  8. FUROSEMIDE [Concomitant]
  9. LEVOFLOXACIN [Concomitant]
  10. POTASSIUM CHLORIDE [Concomitant]
  11. ISOSORBIDE MONONITRATE [Concomitant]
  12. LORATADINE [Concomitant]
  13. FLUNISOLIDE/MENTHOL [Concomitant]
  14. INSULIN HUMAN NPH [Concomitant]
  15. GLIPIZIDE [Concomitant]
  16. ALBUTEROL [Concomitant]

REACTIONS (1)
  - GASTROINTESTINAL HAEMORRHAGE [None]
